FAERS Safety Report 21702032 (Version 4)
Quarter: 2023Q2

REPORT INFORMATION
  Report Type: Report from Study
  Country: US (occurrence: US)
  Receive Date: 20221208
  Receipt Date: 20230403
  Transmission Date: 20230721
  Serious: Yes (Life-Threatening, Hospitalization)
  Sender: FDA-Public Use
  Company Number: US-PFIZER INC-PV202200095190

PATIENT
  Age: 19 Year
  Sex: Male
  Weight: 62.8 kg

DRUGS (9)
  1. VINCRISTINE SULFATE [Suspect]
     Active Substance: VINCRISTINE SULFATE
     Indication: Acute lymphocytic leukaemia
     Dosage: 2 MG, Q28 DAYS
     Route: 042
     Dates: start: 20191204, end: 20221012
  2. METHOTREXATE SODIUM [Suspect]
     Active Substance: METHOTREXATE SODIUM
     Indication: Acute lymphocytic leukaemia
     Dosage: 15 MG, D1
     Route: 037
     Dates: start: 20191120, end: 20221012
  3. CYTARABINE [Suspect]
     Active Substance: CYTARABINE
     Indication: Acute lymphocytic leukaemia
     Dosage: UNK MILLIGRAM/SQ.
     Route: 042
     Dates: end: 20200520
  4. RUXOLITINIB [Suspect]
     Active Substance: RUXOLITINIB
     Indication: Acute lymphocytic leukaemia
     Dosage: 85 MG, BID 14D/ON AND 14/D OFF, TABLET
     Route: 048
     Dates: start: 20191120, end: 20221012
  5. MERCAPTOPURINE [Suspect]
     Active Substance: MERCAPTOPURINE
     Indication: Acute lymphocytic leukaemia
     Dosage: 75 MG, QD,TABLET
     Route: 048
     Dates: start: 20200131, end: 20221012
  6. PREDNISONE [Suspect]
     Active Substance: PREDNISONE
     Indication: Acute lymphocytic leukaemia
     Dosage: 35 MG, 5D BID, TABLET
     Route: 048
     Dates: start: 20200826, end: 20221012
  7. METHOTREXATE [Suspect]
     Active Substance: METHOTREXATE
     Indication: Acute lymphocytic leukaemia
     Dosage: 26.25 MG, WEEKLY ON WED,S TABLET
     Route: 048
     Dates: start: 20200902, end: 20221012
  8. PEGASPARGASE [Suspect]
     Active Substance: PEGASPARGASE
     Indication: Acute lymphocytic leukaemia
     Dosage: UNK IU/M2
     Route: 042
     Dates: end: 20200721
  9. MEGESTROL [Concomitant]
     Active Substance: MEGESTROL
     Dosage: UNK
     Dates: start: 20220921

REACTIONS (4)
  - Sepsis [Recovered/Resolved]
  - Pneumonia [Recovered/Resolved]
  - Respiratory failure [Recovered/Resolved]
  - Febrile neutropenia [Recovered/Resolved]

NARRATIVE: CASE EVENT DATE: 20221006
